FAERS Safety Report 16555234 (Version 1)
Quarter: 2019Q3

REPORT INFORMATION
  Report Type: Spontaneous
  Country: US (occurrence: US)
  Receive Date: 20190710
  Receipt Date: 20190710
  Transmission Date: 20191004
  Serious: No
  Sender: FDA-Public Use
  Company Number: US-BAUSCH-BL-2019-017849

PATIENT
  Age: 69 Year
  Sex: Female

DRUGS (4)
  1. BRIMONIDINE TARTRATE OPHTHALMIC SOLUTION 0.2% [Suspect]
     Active Substance: BRIMONIDINE TARTRATE
     Route: 047
     Dates: start: 20190617, end: 20190617
  2. BRIMONIDINE TARTRATE OPHTHALMIC SOLUTION 0.2% [Suspect]
     Active Substance: BRIMONIDINE TARTRATE
     Indication: GLAUCOMA
     Dosage: 1 DROP IN EACH EYE
     Route: 047
     Dates: start: 2018, end: 201905
  3. BRIMONIDINE TARTRATE OPHTHALMIC SOLUTION 0.2% [Suspect]
     Active Substance: BRIMONIDINE TARTRATE
     Route: 047
     Dates: start: 20190618
  4. BRIMONIDINE TARTRATE OPHTHALMIC SOLUTION 0.2% [Suspect]
     Active Substance: BRIMONIDINE TARTRATE
     Dosage: 1 DROP IN EACH EYE
     Route: 047
     Dates: start: 201905, end: 20190616

REACTIONS (2)
  - Product quality issue [Unknown]
  - Headache [Not Recovered/Not Resolved]

NARRATIVE: CASE EVENT DATE: 201905
